FAERS Safety Report 4414107-6 (Version None)
Quarter: 2004Q3

REPORT INFORMATION
  Report Type: 
  Country: None (occurrence: None)
  Receive Date: 20040728
  Receipt Date: 20040720
  Transmission Date: 20050211
  Serious: Yes (Hospitalization)
  Sender: FDA-Public Use
  Company Number: 2004048870

PATIENT

DRUGS (1)
  1. NEURONTIN [Suspect]
     Indication: BACK PAIN
     Dosage: 300 MG (3 IN 1 D), ORAL
     Route: 048
     Dates: start: 20040601

REACTIONS (2)
  - ARRHYTHMIA [None]
  - URINARY TRACT INFECTION [None]
